FAERS Safety Report 17275505 (Version 1)
Quarter: 2020Q1

REPORT INFORMATION
  Report Type: Spontaneous
  Country: JO (occurrence: JO)
  Receive Date: 20200116
  Receipt Date: 20200116
  Transmission Date: 20200409
  Serious: Yes (Death, Hospitalization, Other)
  Sender: FDA-Public Use
  Company Number: JO-LUPIN PHARMACEUTICALS INC.-2013-01093

PATIENT
  Age: 40 Year
  Sex: Female

DRUGS (5)
  1. VENLAFAXINE [Suspect]
     Active Substance: VENLAFAXINE HYDROCHLORIDE
     Indication: PSYCHOTIC SYMPTOM
     Dosage: UNK UNK,UNK,DAILY
     Route: 048
  2. FERROUS SULFATE. [Concomitant]
     Active Substance: FERROUS SULFATE
     Indication: MINERAL SUPPLEMENTATION
     Dosage: 325 MG,TID,
     Route: 065
  3. LAMOTRIGINE. [Suspect]
     Active Substance: LAMOTRIGINE
     Indication: PSYCHOTIC SYMPTOM
     Dosage: UNK UNK,UNK,DAILY
     Route: 048
  4. QUETIAPINE. [Suspect]
     Active Substance: QUETIAPINE
     Indication: PSYCHOTIC SYMPTOM
     Dosage: UNK UNK,UNK,DAILY
     Route: 048
  5. MIRTAZAPINE. [Suspect]
     Active Substance: MIRTAZAPINE
     Indication: PSYCHOTIC SYMPTOM
     Dosage: UNK UNK,UNK,DAILY
     Route: 048

REACTIONS (8)
  - Agranulocytosis [Fatal]
  - Febrile neutropenia [Unknown]
  - Seizure [Unknown]
  - Septic shock [Unknown]
  - Oral candidiasis [Unknown]
  - Acute kidney injury [Unknown]
  - Cellulitis [Unknown]
  - Cardiac arrest [Unknown]
